FAERS Safety Report 24370245 (Version 1)
Quarter: 2024Q3

REPORT INFORMATION
  Report Type: Report from Study
  Country: US (occurrence: US)
  Receive Date: 20240927
  Receipt Date: 20240927
  Transmission Date: 20241016
  Serious: No
  Sender: ROCHE
  Company Number: US-ROCHE-3571147

PATIENT
  Sex: Female
  Weight: 81.65 kg

DRUGS (6)
  1. LUCENTIS [Suspect]
     Active Substance: RANIBIZUMAB
     Indication: Retinal neovascularisation
     Route: 050
  2. LUCENTIS [Suspect]
     Active Substance: RANIBIZUMAB
     Indication: Central serous chorioretinopathy
  3. LUCENTIS [Suspect]
     Active Substance: RANIBIZUMAB
     Indication: Detachment of retinal pigment epithelium
  4. LUCENTIS [Suspect]
     Active Substance: RANIBIZUMAB
     Indication: Retinal drusen
  5. LUCENTIS [Suspect]
     Active Substance: RANIBIZUMAB
     Indication: Choroidal neovascularisation
  6. LUCENTIS [Suspect]
     Active Substance: RANIBIZUMAB
     Indication: Central serous chorioretinopathy

REACTIONS (2)
  - Off label use [Unknown]
  - No adverse event [Unknown]
